FAERS Safety Report 7149080-3 (Version None)
Quarter: 2010Q4

REPORT INFORMATION
  Report Type: 
  Country: None (occurrence: None)
  Receive Date: 20101209
  Receipt Date: 20101130
  Transmission Date: 20110411
  Serious: Yes (Hospitalization)
  Sender: FDA-Public Use
  Company Number: JP-BRISTOL-MYERS SQUIBB COMPANY-15405939

PATIENT
  Age: 75 Year
  Sex: Female
  Weight: 37 kg

DRUGS (7)
  1. ABILIFY [Suspect]
     Indication: SCHIZOPHRENIA
     Dosage: 6MG BID :07APR-06MAY10,6/12MG TID;07MAY10-03JUN2010(28DAYS),12MG BID FROM 04JUN10-07NOV10(157DAY).
     Route: 048
     Dates: start: 20100407, end: 20101107
  2. DIOVAN HCT [Concomitant]
     Dosage: TABLET
     Dates: start: 20091204, end: 20101104
  3. BROTIZOLAM [Concomitant]
     Dosage: FORM: TABLET.
     Dates: start: 20100424, end: 20101107
  4. ZOSYN [Concomitant]
     Dosage: FORM: INJECTION
     Dates: start: 20101104, end: 20101108
  5. AMLODIPINE [Concomitant]
     Dates: start: 20101105, end: 20101107
  6. SENNOSIDE [Concomitant]
     Dates: start: 20100330, end: 20101107
  7. MAGMITT [Concomitant]
     Dosage: TABLET
     Dates: start: 20100407, end: 20101107

REACTIONS (3)
  - ALTERED STATE OF CONSCIOUSNESS [None]
  - CONVULSION [None]
  - HYPOTHERMIA [None]
